FAERS Safety Report 10560401 (Version 2)
Quarter: 2014Q4

REPORT INFORMATION
  Report Type: Spontaneous
  Country: ES (occurrence: ES)
  Receive Date: 20141103
  Receipt Date: 20141201
  Transmission Date: 20150529
  Serious: Yes (Hospitalization)
  Sender: FDA-Public Use
  Company Number: ES-SA-2014SA146088

PATIENT
  Age: 76 Year
  Sex: Female

DRUGS (6)
  1. SEGURIL [Suspect]
     Active Substance: FUROSEMIDE
     Dosage: DOSAGE TEXT:1-0-0 (EN LOS ULTIMOS 3 DIAS)
     Route: 048
     Dates: start: 20110902, end: 20140104
  2. MICARDIS [Interacting]
     Active Substance: TELMISARTAN
     Indication: CARDIOMYOPATHY
     Dosage: DOSAGE TEXT:1/2-0-0
     Route: 048
     Dates: start: 20130827, end: 20140104
  3. ALDACTONE [Interacting]
     Active Substance: SPIRONOLACTONE
     Indication: CARDIOMYOPATHY
     Dosage: DOASGE TEXT:1-0-0
     Route: 048
     Dates: start: 20110902, end: 20140104
  4. SINTROM [Concomitant]
     Active Substance: ACENOCOUMAROL
     Dosage: SP
     Route: 048
     Dates: start: 2009
  5. BISOPROLOL [Concomitant]
     Active Substance: BISOPROLOL
     Dosage: 1-0-1
     Route: 048
     Dates: start: 20130401, end: 20140104
  6. NORFLOXACIN [Concomitant]
     Active Substance: NORFLOXACIN
     Dosage: 1-0-0
     Route: 048
     Dates: start: 20131224

REACTIONS (4)
  - Hyponatraemia [Recovered/Resolved]
  - Drug interaction [Unknown]
  - Asthenia [Recovered/Resolved]
  - Hyperkalaemia [Recovered/Resolved]

NARRATIVE: CASE EVENT DATE: 20140105
